FAERS Safety Report 4727404-1 (Version None)
Quarter: 2005Q3

REPORT INFORMATION
  Report Type: 
  Country: None (occurrence: None)
  Receive Date: 20050727
  Receipt Date: 20050727
  Transmission Date: 20060218
  Serious: Yes (Hospitalization)
  Sender: FDA-Public Use
  Company Number: None

PATIENT
  Age: 81 Year
  Sex: Female
  Weight: 89.1 kg

DRUGS (11)
  1. GLIPIZIDE [Suspect]
     Indication: BLOOD GLUCOSE INCREASED
     Dosage: 10 MG PO BID [POST TWO WEEKS]
     Route: 048
  2. LANTUS [Suspect]
     Indication: BLOOD GLUCOSE INCREASED
     Dosage: 70 UNITS QHS  [CHRONIC]
  3. METOPROLOL [Concomitant]
  4. PRAVACHOL [Concomitant]
  5. LASIX [Concomitant]
  6. LISINOPRIL [Concomitant]
  7. POTASSIUM CHLORIDE [Concomitant]
  8. LANTUS [Concomitant]
  9. XALATAN [Concomitant]
  10. PROCRIT [Concomitant]
  11. GLIPIZIDE [Concomitant]

REACTIONS (6)
  - CEREBROVASCULAR ACCIDENT [None]
  - DEMENTIA [None]
  - HYPOGLYCAEMIA [None]
  - LOSS OF CONSCIOUSNESS [None]
  - METABOLIC ENCEPHALOPATHY [None]
  - URINARY TRACT INFECTION [None]
